FAERS Safety Report 12435188 (Version 2)
Quarter: 2017Q2

REPORT INFORMATION
  Report Type: Spontaneous
  Country: US (occurrence: US)
  Receive Date: 20160603
  Receipt Date: 20170607
  Transmission Date: 20170830
  Serious: No
  Sender: FDA-Public Use
  Company Number: US-ROCHE-1341647

PATIENT
  Sex: Female

DRUGS (10)
  1. XELODA [Suspect]
     Active Substance: CAPECITABINE
     Indication: BREAST CANCER
     Dosage: 14 DAYS ON, 7 OFF
     Route: 048
     Dates: start: 20121211
  2. PROTONIX [Concomitant]
     Active Substance: PANTOPRAZOLE SODIUM
  3. XGEVA [Concomitant]
     Active Substance: DENOSUMAB
  4. PROBIOTIC (ENZYMES, INC) [Concomitant]
  5. VITAMIN B12 [Concomitant]
     Active Substance: CYANOCOBALAMIN
  6. XELODA [Suspect]
     Active Substance: CAPECITABINE
     Dosage: 14 DAYS ON, 7 OFF
     Route: 048
     Dates: start: 20121207
  7. VICOPROFEN [Concomitant]
     Active Substance: HYDROCODONE BITARTRATE\IBUPROFEN
  8. FUROSEMIDE. [Concomitant]
     Active Substance: FUROSEMIDE
  9. XELODA [Suspect]
     Active Substance: CAPECITABINE
     Dosage: 14 DAYS ON, 7 OFF
     Route: 048
     Dates: start: 20121211
  10. VITAMIN D3 [Concomitant]
     Active Substance: CHOLECALCIFEROL

REACTIONS (5)
  - Vomiting projectile [Unknown]
  - Dry eye [Unknown]
  - Malaise [Unknown]
  - Neuropathy peripheral [Unknown]
  - Nail discolouration [Unknown]
